FAERS Safety Report 9542943 (Version 2)
Quarter: 2014Q3

REPORT INFORMATION
  Report Type: Spontaneous
  Country: US (occurrence: US)
  Receive Date: 20130923
  Receipt Date: 20140821
  Transmission Date: 20150326
  Serious: Yes (Hospitalization, Other)
  Sender: FDA-Public Use
  Company Number: US-009507513-1309USA008116

PATIENT
  Sex: Female

DRUGS (1)
  1. NUVARING [Suspect]
     Active Substance: ETHINYL ESTRADIOL\ETONOGESTREL
     Indication: CONTRACEPTION
     Dosage: UNK
     Route: 067
     Dates: start: 20090914, end: 201006

REACTIONS (8)
  - Migraine [Unknown]
  - Abdominal distension [Unknown]
  - Deep vein thrombosis [Unknown]
  - Metrorrhagia [Unknown]
  - Panic attack [Unknown]
  - Pulmonary embolism [Unknown]
  - Inappropriate schedule of drug administration [Unknown]
  - Haemorrhage [Unknown]

NARRATIVE: CASE EVENT DATE: 2010
